FAERS Safety Report 9964934 (Version 1)
Quarter: 2014Q1

REPORT INFORMATION
  Report Type: Spontaneous
  Country: HR (occurrence: HR)
  Receive Date: 20140305
  Receipt Date: 20140305
  Transmission Date: 20141002
  Serious: Yes (Other)
  Sender: FDA-Public Use
  Company Number: PHHY2014HR023666

PATIENT
  Age: 32 Year
  Sex: Female
  Weight: 125 kg

DRUGS (2)
  1. OSPAMOX [Suspect]
     Indication: ACUTE TONSILLITIS
     Route: 048
     Dates: start: 20140205, end: 20140205
  2. EUTHYROX [Concomitant]
     Indication: HYPOTHYROIDISM
     Route: 048
     Dates: start: 20060107

REACTIONS (7)
  - Hypersensitivity [Not Recovered/Not Resolved]
  - Choking sensation [Not Recovered/Not Resolved]
  - Local swelling [Not Recovered/Not Resolved]
  - Lip swelling [Not Recovered/Not Resolved]
  - Cough [Not Recovered/Not Resolved]
  - Pruritus [Not Recovered/Not Resolved]
  - Erythema [Not Recovered/Not Resolved]
